FAERS Safety Report 25268690 (Version 1)
Quarter: 2025Q2

REPORT INFORMATION
  Report Type: Report from Study
  Country: KR (occurrence: KR)
  Receive Date: 20250505
  Receipt Date: 20250505
  Transmission Date: 20250716
  Serious: Yes (Hospitalization)
  Sender: ROCHE
  Company Number: KR-ROCHE-10000272660

PATIENT
  Age: 69 Year
  Sex: Female
  Weight: 68.7 kg

DRUGS (37)
  1. ADO-TRASTUZUMAB EMTANSINE [Suspect]
     Active Substance: ADO-TRASTUZUMAB EMTANSINE
     Indication: Gallbladder cancer
     Route: 042
     Dates: start: 20240115, end: 20240115
  2. ADO-TRASTUZUMAB EMTANSINE [Suspect]
     Active Substance: ADO-TRASTUZUMAB EMTANSINE
     Route: 042
     Dates: start: 20240205, end: 20240205
  3. ADO-TRASTUZUMAB EMTANSINE [Suspect]
     Active Substance: ADO-TRASTUZUMAB EMTANSINE
     Route: 042
     Dates: start: 20240226, end: 20240226
  4. ADO-TRASTUZUMAB EMTANSINE [Suspect]
     Active Substance: ADO-TRASTUZUMAB EMTANSINE
     Route: 042
     Dates: start: 20240318, end: 20240318
  5. ADO-TRASTUZUMAB EMTANSINE [Suspect]
     Active Substance: ADO-TRASTUZUMAB EMTANSINE
     Route: 042
     Dates: start: 20240411, end: 20240411
  6. ADO-TRASTUZUMAB EMTANSINE [Suspect]
     Active Substance: ADO-TRASTUZUMAB EMTANSINE
     Route: 042
     Dates: start: 20240508, end: 20240508
  7. ADO-TRASTUZUMAB EMTANSINE [Suspect]
     Active Substance: ADO-TRASTUZUMAB EMTANSINE
     Route: 042
     Dates: start: 20240527, end: 20240527
  8. ADO-TRASTUZUMAB EMTANSINE [Suspect]
     Active Substance: ADO-TRASTUZUMAB EMTANSINE
     Route: 042
     Dates: start: 20240624, end: 20240624
  9. ADO-TRASTUZUMAB EMTANSINE [Suspect]
     Active Substance: ADO-TRASTUZUMAB EMTANSINE
     Route: 042
     Dates: start: 20240722, end: 20240722
  10. ADO-TRASTUZUMAB EMTANSINE [Suspect]
     Active Substance: ADO-TRASTUZUMAB EMTANSINE
     Route: 042
     Dates: start: 20240819, end: 20240819
  11. ADO-TRASTUZUMAB EMTANSINE [Suspect]
     Active Substance: ADO-TRASTUZUMAB EMTANSINE
     Route: 042
     Dates: start: 20240909, end: 20240909
  12. ADO-TRASTUZUMAB EMTANSINE [Suspect]
     Active Substance: ADO-TRASTUZUMAB EMTANSINE
     Route: 042
     Dates: start: 20241010, end: 20241010
  13. ADO-TRASTUZUMAB EMTANSINE [Suspect]
     Active Substance: ADO-TRASTUZUMAB EMTANSINE
     Route: 042
     Dates: start: 20241104, end: 20241104
  14. ADO-TRASTUZUMAB EMTANSINE [Suspect]
     Active Substance: ADO-TRASTUZUMAB EMTANSINE
     Route: 042
     Dates: start: 20241202, end: 20241202
  15. ADO-TRASTUZUMAB EMTANSINE [Suspect]
     Active Substance: ADO-TRASTUZUMAB EMTANSINE
     Route: 042
     Dates: start: 20241226, end: 20241226
  16. ADO-TRASTUZUMAB EMTANSINE [Suspect]
     Active Substance: ADO-TRASTUZUMAB EMTANSINE
     Route: 042
     Dates: start: 20250120, end: 20250120
  17. ADO-TRASTUZUMAB EMTANSINE [Suspect]
     Active Substance: ADO-TRASTUZUMAB EMTANSINE
     Route: 042
     Dates: start: 20250217, end: 20250217
  18. ADO-TRASTUZUMAB EMTANSINE [Suspect]
     Active Substance: ADO-TRASTUZUMAB EMTANSINE
     Route: 042
     Dates: start: 20250317, end: 20250317
  19. CHOLINE ALFOSCERATE [Concomitant]
     Active Substance: CHOLINE ALFOSCERATE
     Dates: start: 20210802, end: 20230802
  20. LIVALO V [Concomitant]
     Dosage: 2/160 MG
     Route: 048
     Dates: start: 20210119, end: 20210119
  21. CELEBREX [Concomitant]
     Active Substance: CELECOXIB
     Dates: start: 20211013, end: 20211013
  22. LYRICA [Concomitant]
     Active Substance: PREGABALIN
     Route: 048
     Dates: start: 20231026, end: 20231207
  23. CLANZA CR [Concomitant]
     Active Substance: ACECLOFENAC
     Route: 048
     Dates: start: 20230616, end: 20230616
  24. ESWONAMP [Concomitant]
     Route: 048
     Dates: start: 20230616, end: 20230616
  25. DIACEREIN [Concomitant]
     Active Substance: DIACEREIN
     Route: 048
     Dates: start: 20230616, end: 20230616
  26. GAMOTEC SR [Concomitant]
     Route: 048
     Dates: start: 20230616, end: 20230616
  27. TANAMINE [Concomitant]
     Route: 048
     Dates: start: 20210702, end: 20230609
  28. FEMARA [Concomitant]
     Active Substance: LETROZOLE
     Route: 048
     Dates: start: 20230309, end: 20230309
  29. Dicamax D [Concomitant]
     Route: 048
     Dates: start: 20230309, end: 20230309
  30. SETOPEN [Concomitant]
     Route: 048
     Dates: start: 20241104, end: 20241104
  31. Ginkgo Biloba Ext [Concomitant]
     Route: 048
     Dates: start: 20250305, end: 20250305
  32. METOCLOPRAMIDE HYDROCHLORIDE [Concomitant]
     Active Substance: METOCLOPRAMIDE HYDROCHLORIDE
     Route: 048
     Dates: start: 20240208, end: 20240228
  33. KYTRIL [Concomitant]
     Active Substance: GRANISETRON HYDROCHLORIDE
     Route: 048
     Dates: start: 20240208, end: 20240208
  34. ACETAMINOPHEN [Concomitant]
     Active Substance: ACETAMINOPHEN
     Route: 048
     Dates: start: 20240208, end: 20240208
  35. MAGNESIUM OXIDE [Concomitant]
     Active Substance: MAGNESIUM OXIDE
     Route: 048
     Dates: start: 20240819, end: 20240819
  36. UTURN [Concomitant]
     Route: 048
     Dates: start: 20250305, end: 20250305
  37. Amilo [Concomitant]
     Route: 048
     Dates: start: 20250305, end: 20250305

REACTIONS (1)
  - Acute kidney injury [Not Recovered/Not Resolved]

NARRATIVE: CASE EVENT DATE: 20250429
